FAERS Safety Report 10755135 (Version 1)
Quarter: 2015Q1

REPORT INFORMATION
  Report Type: Spontaneous
  Country: US (occurrence: None)
  Receive Date: 20150130
  Receipt Date: 20150130
  Transmission Date: 20150721
  Serious: Yes (Disabling)
  Sender: FDA-Public Use
  Company Number: None

PATIENT
  Age: 53 Year
  Sex: Female
  Weight: 74.84 kg

DRUGS (1)
  1. ATORVASTATIN 10 MG SANDOZ [Suspect]
     Active Substance: ATORVASTATIN
     Indication: BLOOD CHOLESTEROL INCREASED
     Dosage: 1 PILL
     Route: 048
     Dates: start: 20140804, end: 20140812

REACTIONS (3)
  - Pain in extremity [None]
  - Muscle disorder [None]
  - Limb discomfort [None]

NARRATIVE: CASE EVENT DATE: 20140724
